FAERS Safety Report 5169054-1 (Version None)
Quarter: 2006Q4

REPORT INFORMATION
  Report Type: 
  Country: None (occurrence: None)
  Receive Date: 20061211
  Receipt Date: 20061204
  Transmission Date: 20070319
  Serious: Yes (Death)
  Sender: FDA-Public Use
  Company Number: 2006SE06595

PATIENT
  Age: 4 Year
  Sex: Female

DRUGS (1)
  1. PROPOFOL [Suspect]

REACTIONS (10)
  - HEPATOMEGALY [None]
  - HYPERKALAEMIA [None]
  - HYPOTENSION [None]
  - INTERNATIONAL NORMALISED RATIO INCREASED [None]
  - LIPIDS ABNORMAL [None]
  - METABOLIC ACIDOSIS [None]
  - PROPOFOL INFUSION SYNDROME [None]
  - RHABDOMYOLYSIS [None]
  - TACHYCARDIA [None]
  - VENTRICULAR FIBRILLATION [None]
